FAERS Safety Report 12506492 (Version 5)
Quarter: 2017Q1

REPORT INFORMATION
  Report Type: Spontaneous
  Country: US (occurrence: US)
  Receive Date: 20160628
  Receipt Date: 20170224
  Transmission Date: 20170428
  Serious: Yes (Death, Disabling)
  Sender: FDA-Public Use
  Company Number: US-ACTELION-A-US2016-138094

PATIENT
  Age: 30 Year
  Sex: Female

DRUGS (12)
  1. REMODULIN [Concomitant]
     Active Substance: TREPROSTINIL
  2. VITAMIN B12 [Concomitant]
     Active Substance: CYANOCOBALAMIN
  3. IRON [Concomitant]
     Active Substance: IRON
  4. VITAMIN D [Concomitant]
     Active Substance: CHOLECALCIFEROL
  5. ALDACTONE [Concomitant]
     Active Substance: SPIRONOLACTONE
  6. FUROSEMIDE. [Concomitant]
     Active Substance: FUROSEMIDE
  7. DIGOXIN. [Concomitant]
     Active Substance: DIGOXIN
  8. SILDENAFIL. [Concomitant]
     Active Substance: SILDENAFIL
  9. OPSUMIT [Suspect]
     Active Substance: MACITENTAN
     Indication: PULMONARY ARTERIAL HYPERTENSION
     Dosage: 10 MG, UNK
     Route: 048
     Dates: start: 20140415, end: 20160618
  10. FOLIC ACID. [Concomitant]
     Active Substance: FOLIC ACID
  11. COUMADIN [Concomitant]
     Active Substance: WARFARIN SODIUM
  12. METOCLOPRAMIDE. [Concomitant]
     Active Substance: METOCLOPRAMIDE

REACTIONS (4)
  - Myocardial infarction [Fatal]
  - Right ventricular failure [Fatal]
  - Tachycardia [Not Recovered/Not Resolved]
  - Oxygen saturation decreased [Not Recovered/Not Resolved]

NARRATIVE: CASE EVENT DATE: 20160614
